FAERS Safety Report 5818187-2 (Version None)
Quarter: 2008Q3

REPORT INFORMATION
  Report Type: 
  Country: None (occurrence: None)
  Receive Date: 20080722
  Receipt Date: 20080714
  Transmission Date: 20090109
  Serious: Yes (Other)
  Sender: FDA-Public Use
  Company Number: US-PFIZER INC-2003031259

PATIENT
  Sex: Female
  Weight: 53.5 kg

DRUGS (12)
  1. NEURONTIN [Suspect]
     Indication: NEURALGIA
     Dosage: TEXT:UNKNOWN-FREQ:UNKNOWN
     Route: 048
     Dates: start: 19990101, end: 20030101
  2. NEURONTIN [Suspect]
     Indication: NEUROPATHY PERIPHERAL
  3. MORPHINE [Interacting]
     Dosage: FREQ:BID: EVERY DAY
  4. ALL OTHER THERAPEUTIC PRODUCTS [Suspect]
     Indication: ILL-DEFINED DISORDER
     Dosage: TEXT:UNKNOWN-FREQ:UNKNOWN
     Route: 065
  5. OPIOIDS [Suspect]
  6. GENERAL NUTRIENTS [Interacting]
  7. FENTANYL-100 [Concomitant]
     Route: 065
  8. SOMA [Concomitant]
     Route: 065
  9. VALIUM [Concomitant]
     Route: 065
  10. ROXICODONE [Concomitant]
     Route: 065
  11. TRAZODONE HCL [Concomitant]
     Route: 065
  12. OXYCODONE HCL [Concomitant]

REACTIONS (13)
  - ANAEMIA [None]
  - CONFUSIONAL STATE [None]
  - DISTURBANCE IN ATTENTION [None]
  - DRUG ADMINISTRATION ERROR [None]
  - DRUG INTERACTION [None]
  - DRUG TOLERANCE [None]
  - IMPAIRED DRIVING ABILITY [None]
  - LYMPHOEDEMA [None]
  - NARCOLEPSY [None]
  - OVERDOSE [None]
  - PAIN [None]
  - PETIT MAL EPILEPSY [None]
  - WEIGHT DECREASED [None]
